FAERS Safety Report 7828304-0 (Version None)
Quarter: 2011Q4

REPORT INFORMATION
  Report Type: 
  Country: None (occurrence: None)
  Receive Date: 20111020
  Receipt Date: 20111015
  Transmission Date: 20120403
  Serious: No
  Sender: FDA-Public Use
  Company Number: US-PFIZER INC-2011247047

PATIENT
  Sex: Male
  Weight: 124.72 kg

DRUGS (1)
  1. LYRICA [Suspect]
     Indication: NEUROPATHY PERIPHERAL
     Dosage: 75 MG (THREE OF 25MG), 1X/DAY
     Route: 048

REACTIONS (5)
  - ABNORMAL SENSATION IN EYE [None]
  - DRUG INEFFECTIVE [None]
  - SENSORY DISTURBANCE [None]
  - MUSCLE TWITCHING [None]
  - HEARING IMPAIRED [None]
